FAERS Safety Report 9848053 (Version 1)
Quarter: 2013Q4

REPORT INFORMATION
  Report Type: Spontaneous
  Country: US (occurrence: None)
  Receive Date: 20131223
  Receipt Date: 20131223
  Transmission Date: 20140711
  Serious: No
  Sender: FDA-Public Use
  Company Number: CABO-13003465

PATIENT
  Age: 72 Year
  Sex: Male

DRUGS (10)
  1. COMETRIQ [Suspect]
     Indication: PROSTATE CANCER
     Route: 048
     Dates: start: 20130703, end: 20131011
  2. COMETRIQ [Suspect]
     Indication: METASTASES TO BONE MARROW
     Route: 048
     Dates: start: 20130703, end: 20131011
  3. KLOR-CON (POTASSIUM CHLORIDE) [Concomitant]
  4. CARBATROL (CARBAMAZEPINE) [Concomitant]
  5. METFORMIN (METFORMIN HYDROCHLORIDE) [Concomitant]
  6. LEVOTHYROXINE (LEVOTHYROXINE SODIUM) [Concomitant]
  7. NEXIUM (ESOMEPRZOLE SODIUM) [Concomitant]
  8. B-12 (CYANOCOBALAMIN) [Concomitant]
  9. XGEVA (DENOSUMAB) [Concomitant]
  10. LUPRON DEPOT-3 MONTH (LEUPRORELIN ACETATE) [Concomitant]

REACTIONS (7)
  - Disorientation [None]
  - Weight decreased [None]
  - Decreased appetite [None]
  - Stomatitis [None]
  - Constipation [None]
  - Asthenia [None]
  - Off label use [None]
